FAERS Safety Report 6606433-7 (Version None)
Quarter: 2010Q1

REPORT INFORMATION
  Report Type: 
  Country: None (occurrence: None)
  Receive Date: 20100226
  Receipt Date: 20100215
  Transmission Date: 20100710
  Serious: Yes (Hospitalization, Other)
  Sender: FDA-Public Use
  Company Number: PHHY2010JP02581

PATIENT
  Sex: Female
  Weight: 47 kg

DRUGS (4)
  1. CO-DIOVAN [Suspect]
     Indication: HYPERTENSION
     Dosage: 1 DF
     Route: 048
     Dates: start: 20091221, end: 20100104
  2. CALSLOT [Concomitant]
     Dosage: 20 MG
     Route: 048
  3. OMEPRAL [Concomitant]
     Dosage: 10 MG
     Route: 048
  4. LIPOVAS [Concomitant]
     Dosage: 5 MG
     Route: 048

REACTIONS (4)
  - GAIT DISTURBANCE [None]
  - HYPONATRAEMIA [None]
  - INAPPROPRIATE ANTIDIURETIC HORMONE SECRETION [None]
  - MALAISE [None]
